FAERS Safety Report 10588032 (Version 1)
Quarter: 2014Q4

REPORT INFORMATION
  Report Type: Spontaneous
  Country: US (occurrence: US)
  Receive Date: 20141117
  Receipt Date: 20141117
  Transmission Date: 20150529
  Serious: Yes (Hospitalization)
  Sender: FDA-Public Use
  Company Number: US-BRISTOL-MYERS SQUIBB COMPANY-21577598

PATIENT
  Age: 77 Year
  Sex: Female
  Weight: 113.38 kg

DRUGS (8)
  1. COUMADIN [Suspect]
     Active Substance: WARFARIN SODIUM
     Indication: CARDIAC DISORDER
     Dosage: 1DF: 5, 6 AND 7.5 MG
     Route: 048
     Dates: end: 20141105
  2. GABAPENTIN. [Concomitant]
     Active Substance: GABAPENTIN
  3. HYDROCODONE [Concomitant]
     Active Substance: HYDROCODONE
  4. METOPROLOL [Concomitant]
     Active Substance: METOPROLOL
  5. FUROSEMIDE. [Concomitant]
     Active Substance: FUROSEMIDE
  6. LISINOPRIL. [Concomitant]
     Active Substance: LISINOPRIL
  7. GLIBENCLAMIDE [Concomitant]
     Active Substance: GLYBURIDE
  8. CLONAZEPAM. [Concomitant]
     Active Substance: CLONAZEPAM

REACTIONS (7)
  - Bacterial infection [Unknown]
  - Weight increased [Unknown]
  - Diarrhoea [Unknown]
  - Food intolerance [Unknown]
  - Cardiac disorder [Unknown]
  - Anxiety [Unknown]
  - Fluid retention [Unknown]
